FAERS Safety Report 8387762-6 (Version None)
Quarter: 2012Q2

REPORT INFORMATION
  Report Type: 
  Country: None (occurrence: None)
  Receive Date: 20120525
  Receipt Date: 20120522
  Transmission Date: 20120825
  Serious: Yes (Hospitalization)
  Sender: FDA-Public Use
  Company Number: US-GLAXOSMITHKLINE-A0978588A

PATIENT
  Age: 59 Year
  Sex: Female

DRUGS (8)
  1. ZOMAX [Concomitant]
  2. INSULIN [Concomitant]
  3. METOPROLOL [Concomitant]
  4. PRISTIQ [Concomitant]
  5. LASIX [Concomitant]
  6. COZAAR [Concomitant]
  7. NOVOLOG [Concomitant]
  8. ADVAIR DISKUS 100/50 [Suspect]
     Indication: CHRONIC OBSTRUCTIVE PULMONARY DISEASE
     Dosage: 2PUFF TWICE PER DAY
     Route: 055

REACTIONS (2)
  - PRODUCT QUALITY ISSUE [None]
  - CARDIAC FAILURE CONGESTIVE [None]
